FAERS Safety Report 16691289 (Version 1)
Quarter: 2019Q3

REPORT INFORMATION
  Report Type: Other
  Country: US (occurrence: RO)
  Receive Date: 20190812
  Receipt Date: 20190812
  Transmission Date: 20191004
  Serious: Yes (Congenital Anomaly, Other)
  Sender: FDA-Public Use
  Company Number: US-MACLEODS PHARMACEUTICALS US LTD-MAC2019022491

PATIENT

DRUGS (4)
  1. TOBACCO [Suspect]
     Active Substance: TOBACCO LEAF
     Indication: PRODUCT USED FOR UNKNOWN INDICATION
     Dosage: UNK, PRIOR TO CONCEPTION AND DURING PREGNANCY
     Route: 064
  2. NEVIRAPINE 400 MG [Suspect]
     Active Substance: NEVIRAPINE
     Indication: PRODUCT USED FOR UNKNOWN INDICATION
     Dosage: 400 MILLIGRAM, QD, 1 COURSE DURING SECOND TRIMESTER
     Route: 064
  3. ALCOHOL. [Suspect]
     Active Substance: ALCOHOL
     Indication: PRODUCT USED FOR UNKNOWN INDICATION
     Dosage: UNK, PRIOR TO CONCEPTION AND DURING PREGNANCY
     Route: 064
  4. COMBIVIR [Suspect]
     Active Substance: LAMIVUDINE\ZIDOVUDINE
     Indication: PRODUCT USED FOR UNKNOWN INDICATION
     Dosage: 1 COURSE OF 1 TAB/CAPS, DURING SECOND TRIMESTER
     Route: 064

REACTIONS (4)
  - Cerebellar hypoplasia [Unknown]
  - Dandy-Walker syndrome [Unknown]
  - Foetal exposure during pregnancy [Unknown]
  - Premature baby [Unknown]
